FAERS Safety Report 8581013-5 (Version None)
Quarter: 2012Q3

REPORT INFORMATION
  Report Type: 
  Country: None (occurrence: None)
  Receive Date: 20120809
  Receipt Date: 20120803
  Transmission Date: 20120928
  Serious: No
  Sender: FDA-Public Use
  Company Number: US-PFIZER INC-2012146634

PATIENT
  Age: 33 Year
  Sex: Female
  Weight: 90.703 kg

DRUGS (1)
  1. ADVIL [Suspect]
     Indication: DYSMENORRHOEA
     Dosage: 200 MG, UNK
     Route: 048
     Dates: start: 20120617, end: 20120617

REACTIONS (3)
  - POOR QUALITY DRUG ADMINISTERED [None]
  - DRUG INEFFECTIVE [None]
  - PRODUCT COATING ISSUE [None]
